FAERS Safety Report 4600223-2 (Version None)
Quarter: 2005Q1

REPORT INFORMATION
  Report Type: 
  Country: None (occurrence: None)
  Receive Date: 20050303
  Receipt Date: 20050225
  Transmission Date: 20050727
  Serious: Yes (Other)
  Sender: FDA-Public Use
  Company Number: 200510475GDS

PATIENT
  Age: 52 Year
  Sex: Female

DRUGS (4)
  1. DACARBAZINE [Suspect]
     Indication: METASTASES TO LIVER
     Dosage: 1700 MG, Q3WK, INTRAVENOUS
     Route: 042
  2. DACARBAZINE [Suspect]
     Indication: METASTASES TO LUNG
     Dosage: 1700 MG, Q3WK, INTRAVENOUS
     Route: 042
  3. DACARBAZINE [Suspect]
     Indication: METASTATIC MALIGNANT MELANOMA
     Dosage: 1700 MG, Q3WK, INTRAVENOUS
     Route: 042
  4. PROPYLTHIOURACIL [Concomitant]

REACTIONS (7)
  - FACE OEDEMA [None]
  - HEMIPLEGIA [None]
  - LOCALISED OEDEMA [None]
  - METASTASES TO CENTRAL NERVOUS SYSTEM [None]
  - MYALGIA [None]
  - OEDEMA PERIPHERAL [None]
  - SENSATION OF HEAVINESS [None]
